FAERS Safety Report 10241439 (Version 1)
Quarter: 2014Q1

REPORT INFORMATION
  Report Type: Spontaneous
  Country: US (occurrence: None)
  Receive Date: 20140306
  Receipt Date: 20140306
  Transmission Date: 20141002
  Serious: Yes (Hospitalization)
  Sender: FDA-Public Use
  Company Number: 163-21880-13122756

PATIENT
  Age: 76 Year
  Sex: Female

DRUGS (7)
  1. REVLIMID (LENALIDOMIDE) (CAPSULES) [Suspect]
     Indication: PLASMA CELL MYELOMA
     Dosage: 50MG, 1 IN 1D, PO
     Route: 048
     Dates: start: 20130129
  2. LEVOTHYROXINE SODIUM (LEVOTHYROXINE SODIUM) [Concomitant]
  3. LISINOPRIL (LISINOPRIL) [Concomitant]
  4. HYOSCYAMINE SULFATE (HYOSCYAMINE SULFATE) [Concomitant]
  5. PROPRANOLOL HCL (PROPRANOLOL HYDROCHLORIDE) [Concomitant]
  6. TRAMADOL HCL (TRAMADOL HYDROCHLORIDE) [Concomitant]
  7. VITAMIN C (ASCORIC ACID) [Concomitant]

REACTIONS (2)
  - Muscular weakness [None]
  - Urinary tract infection [None]
